FAERS Safety Report 21731618 (Version 1)
Quarter: 2022Q4

REPORT INFORMATION
  Report Type: Spontaneous
  Country: US (occurrence: US)
  Receive Date: 20221215
  Receipt Date: 20221215
  Transmission Date: 20230113
  Serious: No
  Sender: FDA-Public Use
  Company Number: US-BRISTOL-MYERS SQUIBB COMPANY-2022-153163

PATIENT
  Age: 60 Year
  Sex: Female
  Weight: 74.39 kg

DRUGS (1)
  1. REVLIMID [Suspect]
     Active Substance: LENALIDOMIDE
     Indication: Plasma cell myeloma
     Dosage: FREQ: DAILY ON CYCLE DAYS 1-7 AND 15-21 OF 28 DAY CYCLE
     Route: 048
     Dates: start: 2019

REACTIONS (3)
  - Somnolence [Not Recovered/Not Resolved]
  - Fatigue [Recovering/Resolving]
  - Off label use [Unknown]
